FAERS Safety Report 12705374 (Version 2)
Quarter: 2016Q3

REPORT INFORMATION
  Report Type: Spontaneous
  Country: US (occurrence: US)
  Receive Date: 20160901
  Receipt Date: 20160915
  Transmission Date: 20161109
  Serious: No
  Sender: FDA-Public Use
  Company Number: US-009507513-1608USA015787

PATIENT
  Age: 25 Year
  Sex: Female
  Weight: 102.95 kg

DRUGS (1)
  1. NEXPLANON [Suspect]
     Active Substance: ETONOGESTREL
     Dosage: INSERTED IN HER LEFT ARM
     Route: 059
     Dates: start: 20160816, end: 20160817

REACTIONS (2)
  - No adverse event [Unknown]
  - Device expulsion [Recovered/Resolved]

NARRATIVE: CASE EVENT DATE: 20160817
